FAERS Safety Report 9568362 (Version 1)
Quarter: 2013Q3

REPORT INFORMATION
  Report Type: Spontaneous
  Country: US (occurrence: US)
  Receive Date: 20130930
  Receipt Date: 20130930
  Transmission Date: 20140515
  Serious: No
  Sender: FDA-Public Use
  Company Number: US-AMGEN-USASP2013057928

PATIENT
  Age: 5 Year
  Sex: Male
  Weight: 16.78 kg

DRUGS (4)
  1. ENBREL [Suspect]
     Indication: PRODUCT USED FOR UNKNOWN INDICATION
     Dosage: 25 MG, QWK
     Route: 058
  2. MELOXICAM [Concomitant]
     Dosage: 7.5 MG, UNK
  3. METHOTREXATE [Concomitant]
     Dosage: 25 MG/ML, UNK
  4. MULTIVITAMINS, PLAIN [Concomitant]
     Dosage: UNK,CHW CHILDS

REACTIONS (1)
  - Injection site bruising [Unknown]
